FAERS Safety Report 9161123 (Version 1)
Quarter: 2013Q1

REPORT INFORMATION
  Report Type: Spontaneous
  Country: SA (occurrence: SA)
  Receive Date: 20130313
  Receipt Date: 20130313
  Transmission Date: 20140127
  Serious: Yes (Other)
  Sender: FDA-Public Use
  Company Number: PHHY2012SA097698

PATIENT
  Age: 72 Year
  Sex: Female

DRUGS (1)
  1. ALENDRONATE [Suspect]

REACTIONS (3)
  - Osteoarthritis [Recovered/Resolved]
  - Groin pain [Recovered/Resolved]
  - Femur fracture [Recovered/Resolved]
